FAERS Safety Report 5457260-8 (Version None)
Quarter: 2007Q3

REPORT INFORMATION
  Report Type: 
  Country: None (occurrence: None)
  Receive Date: 20070918
  Receipt Date: 20070130
  Transmission Date: 20080115
  Serious: No
  Sender: FDA-Public Use
  Company Number: US-ASTRAZENECA-2007UW02092

PATIENT
  Sex: Female

DRUGS (1)
  1. SEROQUEL [Suspect]

REACTIONS (2)
  - ILL-DEFINED DISORDER [None]
  - TYPE 1 DIABETES MELLITUS [None]
